FAERS Safety Report 6639259-9 (Version None)
Quarter: 2010Q1

REPORT INFORMATION
  Report Type: 
  Country: None (occurrence: None)
  Receive Date: 20100315
  Receipt Date: 20100226
  Transmission Date: 20100710
  Serious: No
  Sender: FDA-Public Use
  Company Number: 1-21773829

PATIENT
  Age: 78 Year
  Sex: Female
  Weight: 86.1834 kg

DRUGS (9)
  1. FENTANYL-25 [Suspect]
     Indication: BACK PAIN
     Dosage: 25MCG/HR, TRANSDERMAL
     Route: 062
     Dates: start: 20030101
  2. FENTANYL-50 [Suspect]
     Indication: BACK PAIN
     Dosage: 50 MCG/HR, TRANSDERMAL
     Route: 062
     Dates: end: 20100101
  3. PERCOCET 3/4 TABLET [Concomitant]
  4. LEVOTHYROXINE SODIUM [Concomitant]
  5. LEXAPRO [Concomitant]
  6. LISINOPRIL [Concomitant]
  7. PRILOSEC [Concomitant]
  8. PREMARIN (CONJUGATED ESTROGENS) 625 MG [Concomitant]
  9. LORAZEPAM [Concomitant]

REACTIONS (7)
  - BACK PAIN [None]
  - CONDITION AGGRAVATED [None]
  - DECREASED APPETITE [None]
  - DEPENDENCE [None]
  - FEELING COLD [None]
  - WEIGHT DECREASED [None]
  - WITHDRAWAL SYNDROME [None]
